FAERS Safety Report 24066251 (Version 1)
Quarter: 2024Q3

REPORT INFORMATION
  Report Type: Report from Study
  Country: PH (occurrence: PH)
  Receive Date: 20240709
  Receipt Date: 20240709
  Transmission Date: 20241016
  Serious: Yes (Hospitalization)
  Sender: EISAI
  Company Number: PH-Eisai-EC-2024-169283

PATIENT
  Age: 25 Year
  Sex: Male

DRUGS (1)
  1. LENVIMA [Suspect]
     Active Substance: LENVATINIB
     Indication: Hepatocellular carcinoma
     Route: 048
     Dates: start: 20240608, end: 20240630

REACTIONS (1)
  - Hepatic haemorrhage [Unknown]

NARRATIVE: CASE EVENT DATE: 20240630
